FAERS Safety Report 9474509 (Version 1)
Quarter: 2013Q3

REPORT INFORMATION
  Report Type: Report from Study
  Country: DE (occurrence: DE)
  Receive Date: 20130823
  Receipt Date: 20130823
  Transmission Date: 20140515
  Serious: Yes (Death, Other)
  Sender: FDA-Public Use
  Company Number: DE-BAXTER-2013BAX032904

PATIENT
  Sex: Female

DRUGS (5)
  1. ENDOXAN 1G [Suspect]
     Indication: BREAST CANCER
     Route: 042
  2. EPIRUBICIN [Suspect]
     Indication: BREAST CANCER
     Route: 042
  3. PACLITAXEL [Suspect]
     Indication: BREAST CANCER
     Route: 065
  4. EVEROLIMUS [Suspect]
     Indication: BREAST CANCER
     Dosage: TITRATED DOSING REGIMEN
     Route: 048
  5. EVEROLIMUS [Suspect]
     Dosage: TITRATED DOSING REGIMEN
     Route: 048

REACTIONS (4)
  - Death [Fatal]
  - Renal failure [Not Recovered/Not Resolved]
  - Pneumonia [Not Recovered/Not Resolved]
  - Mucosal inflammation [Not Recovered/Not Resolved]
